FAERS Safety Report 14610316 (Version 1)
Quarter: 2018Q1

REPORT INFORMATION
  Report Type: Spontaneous
  Country: US (occurrence: US)
  Receive Date: 20180307
  Receipt Date: 20180307
  Transmission Date: 20180509
  Serious: Yes (Hospitalization, Other)
  Sender: FDA-Public Use
  Company Number: US-ALLERGAN-1811981US

PATIENT
  Age: 58 Year
  Sex: Female

DRUGS (2)
  1. BOTOX [Suspect]
     Active Substance: ONABOTULINUMTOXINA
     Indication: MIGRAINE
     Dosage: 3 BOTTLES EVERY THREE MONTHS
     Route: 030
     Dates: start: 20180221, end: 20180221
  2. BOTOX [Suspect]
     Active Substance: ONABOTULINUMTOXINA
     Indication: TEMPOROMANDIBULAR JOINT SYNDROME

REACTIONS (12)
  - Hepatic failure [Recovered/Resolved]
  - Injection site rash [Unknown]
  - Drug hypersensitivity [Recovered/Resolved]
  - Leukaemia [Unknown]
  - Bone loss [Not Recovered/Not Resolved]
  - Off label use [Unknown]
  - Gingival disorder [Not Recovered/Not Resolved]
  - Eye irritation [Unknown]
  - Tooth extraction [Recovered/Resolved]
  - Pneumothorax [Recovered/Resolved]
  - Renal failure [Recovered/Resolved]
  - Eyelid ptosis [Not Recovered/Not Resolved]

NARRATIVE: CASE EVENT DATE: 2014
